FAERS Safety Report 4364792-2 (Version None)
Quarter: 2004Q2

REPORT INFORMATION
  Report Type: 
  Country: None (occurrence: None)
  Receive Date: 20040526
  Receipt Date: 20030423
  Transmission Date: 20050107
  Serious: No
  Sender: FDA-Public Use
  Company Number: US-GLAXOSMITHKLINE-A0405957A

PATIENT
  Age: 35 Year
  Sex: Female

DRUGS (12)
  1. LOTRONEX [Suspect]
     Indication: IRRITABLE BOWEL SYNDROME
     Dosage: 1MG TWICE PER DAY
     Route: 048
     Dates: start: 20000512, end: 20000918
  2. FIBER LAXATIVE [Concomitant]
  3. METAMUCIL-2 [Concomitant]
  4. PRILOSEC [Concomitant]
  5. PROVENTIL [Concomitant]
  6. AEROBID [Concomitant]
  7. VIOXX [Concomitant]
  8. VISTARIL [Concomitant]
  9. ECOTRIN [Concomitant]
  10. CELEXA [Concomitant]
  11. ZANAFLEX [Concomitant]
  12. ACCURETIC [Concomitant]

REACTIONS (5)
  - ADENOMYOSIS [None]
  - DRUG INEFFECTIVE [None]
  - ENDOMETRIOSIS [None]
  - RECTAL HAEMORRHAGE [None]
  - UTERINE LEIOMYOMA [None]
